FAERS Safety Report 8195607-2 (Version None)
Quarter: 2012Q1

REPORT INFORMATION
  Report Type: 
  Country: None (occurrence: None)
  Receive Date: 20120308
  Receipt Date: 20120301
  Transmission Date: 20120608
  Serious: Yes (Life-Threatening, Other)
  Sender: FDA-Public Use
  Company Number: CHPA2012US003301

PATIENT
  Age: 52 Year
  Sex: Male

DRUGS (8)
  1. ALBUTEROL [Concomitant]
     Dosage: UNK, UNK
  2. LISINOPRIL [Concomitant]
     Dosage: UNK, UNK
     Route: 048
  3. ACETYLSALICYLIC ACID SRT [Concomitant]
     Dosage: UNK, UNK
     Route: 048
  4. EXCEDRIN BACK \+ BODY CAPLETS [Suspect]
     Indication: HEADACHE
     Dosage: 2 DF, Q6H
     Route: 048
     Dates: start: 20120216, end: 20120218
  5. PRILOSEC [Concomitant]
     Dosage: UNK, UNK
     Route: 048
  6. NITROGLYCERIN [Concomitant]
     Dosage: UNK, UNK
     Route: 061
  7. FLOVENT [Concomitant]
     Dosage: UNK, UNK
  8. ANTIHYPERTENSIVES [Concomitant]
     Indication: HYPERTENSION
     Dosage: UNK, UNK
     Route: 048

REACTIONS (21)
  - FEELING HOT [None]
  - PANIC REACTION [None]
  - OCULAR HYPERAEMIA [None]
  - EYE DISORDER [None]
  - OFF LABEL USE [None]
  - HEART RATE DECREASED [None]
  - URTICARIA [None]
  - RASH MACULAR [None]
  - GAIT DISTURBANCE [None]
  - DYSPHAGIA [None]
  - BACK PAIN [None]
  - PAIN [None]
  - DYSPNOEA [None]
  - ACTIVITIES OF DAILY LIVING IMPAIRED [None]
  - CHEST PAIN [None]
  - BLOOD PRESSURE INCREASED [None]
  - OESOPHAGITIS [None]
  - MALAISE [None]
  - MUSCLE SPASMS [None]
  - THROAT TIGHTNESS [None]
  - DERMATITIS [None]
